FAERS Safety Report 6589359-7 (Version None)
Quarter: 2010Q1

REPORT INFORMATION
  Report Type: 
  Country: None (occurrence: None)
  Receive Date: 20100205
  Receipt Date: 20100127
  Transmission Date: 20100710
  Serious: Yes (Hospitalization)
  Sender: FDA-Public Use
  Company Number: 005985

PATIENT
  Sex: Male
  Weight: 63 kg

DRUGS (3)
  1. KEPPRA [Suspect]
     Indication: EPILEPSY
     Dosage: 1500 MG BID
     Dates: start: 20080901
  2. TOPAMAX [Suspect]
     Indication: EPILEPSY
     Dosage: 75 MG BID, 75MG-0-75MG
     Dates: start: 20081001
  3. TEBONIN [Concomitant]

REACTIONS (5)
  - ANTI-THYROID ANTIBODY POSITIVE [None]
  - BLOOD THYROID STIMULATING HORMONE INCREASED [None]
  - ENDOLYMPHATIC HYDROPS [None]
  - HEARING IMPAIRED [None]
  - MENIERE'S DISEASE [None]
